FAERS Safety Report 7342087-2 (Version None)
Quarter: 2011Q1

REPORT INFORMATION
  Report Type: 
  Country: None (occurrence: None)
  Receive Date: 20110309
  Receipt Date: 20110301
  Transmission Date: 20110831
  Serious: Yes (Other)
  Sender: FDA-Public Use
  Company Number: US-ASTRAZENECA-2011SE09937

PATIENT
  Age: 70 Year
  Sex: Female

DRUGS (1)
  1. ARIMIDEX [Suspect]
     Route: 048

REACTIONS (12)
  - PAIN IN EXTREMITY [None]
  - SURGERY [None]
  - ABASIA [None]
  - MUSCULOSKELETAL DISCOMFORT [None]
  - BACK PAIN [None]
  - BREAST TENDERNESS [None]
  - HEADACHE [None]
  - LIVER DISORDER [None]
  - BREAST PAIN [None]
  - CENTRAL NERVOUS SYSTEM LESION [None]
  - RECURRENT CANCER [None]
  - HEPATITIS B [None]
